FAERS Safety Report 5130970-8 (Version None)
Quarter: 2006Q3

REPORT INFORMATION
  Report Type: 
  Country: None (occurrence: None)
  Receive Date: 20060829
  Receipt Date: 20060714
  Transmission Date: 20061208
  Serious: No
  Sender: FDA-Public Use
  Company Number: PHEH2006US09087

PATIENT
  Age: 39 Year
  Sex: Female
  Weight: 60.3 kg

DRUGS (1)
  1. EXJADE [Suspect]
     Indication: SICKLE CELL ANAEMIA
     Dosage: 1250 MG, QD, ORAL
     Route: 048
     Dates: start: 20060616, end: 20060714

REACTIONS (3)
  - ABDOMINAL PAIN UPPER [None]
  - CHROMATURIA [None]
  - DYSURIA [None]
